FAERS Safety Report 9728288 (Version 1)
Quarter: 2013Q4

REPORT INFORMATION
  Report Type: Spontaneous
  Country: ES (occurrence: ES)
  Receive Date: 20131204
  Receipt Date: 20131204
  Transmission Date: 20140711
  Serious: Yes (Other)
  Sender: FDA-Public Use
  Company Number: ES-MERCK-1312ESP001137

PATIENT
  Age: 80 Year
  Sex: Female

DRUGS (7)
  1. INVANZ [Suspect]
     Indication: URINARY TRACT INFECTION
     Route: 065
     Dates: start: 20131010, end: 20131018
  2. TRAZODONE HYDROCHLORIDE [Suspect]
     Route: 048
     Dates: start: 20130405
  3. GENTAMICIN [Concomitant]
  4. ALPRAZOLAM [Concomitant]
  5. CLOPIDOGREL [Concomitant]
  6. FLUOXETINE [Concomitant]
  7. FUROSEMIDE [Concomitant]

REACTIONS (1)
  - Cholestasis [Recovered/Resolved]
